FAERS Safety Report 15687683 (Version 1)
Quarter: 2018Q4

REPORT INFORMATION
  Report Type: Spontaneous
  Country: US (occurrence: US)
  Receive Date: 20181205
  Receipt Date: 20181205
  Transmission Date: 20190205
  Serious: Yes (Other)
  Sender: FDA-Public Use
  Company Number: US-ROCHE-2048095

PATIENT
  Age: 54 Year
  Sex: Female

DRUGS (3)
  1. ACTILYSE [Suspect]
     Active Substance: ALTEPLASE
     Indication: PULMONARY EMBOLISM
     Dosage: OVER 1 MIN
     Route: 042
  2. ACTILYSE [Suspect]
     Active Substance: ALTEPLASE
     Dosage: OVER 2 HOURS
     Route: 042
  3. NOREPINEPHRINE. [Concomitant]
     Active Substance: NOREPINEPHRINE
     Indication: PRODUCT USED FOR UNKNOWN INDICATION
     Dosage: 5 MCG/MIN  (40 MCG/MIN, THE MAXIMUM DOSE)
     Route: 042

REACTIONS (2)
  - Off label use [Unknown]
  - Cerebral haemorrhage [Recovered/Resolved]
